FAERS Safety Report 7095646-9 (Version None)
Quarter: 2010Q4

REPORT INFORMATION
  Report Type: 
  Country: None (occurrence: None)
  Receive Date: 20101111
  Receipt Date: 20101101
  Transmission Date: 20110411
  Serious: Yes (Death, Hospitalization, Other)
  Sender: FDA-Public Use
  Company Number: PHHY2010JP72877

PATIENT
  Age: 69 Year
  Sex: Female

DRUGS (7)
  1. CYCLOSPORINE [Suspect]
     Indication: RENAL TRANSPLANT
     Dosage: 250 MG
  2. SIMULECT [Suspect]
     Indication: RENAL TRANSPLANT
     Dosage: 20 MG
     Route: 042
  3. CELLCEPT [Concomitant]
     Indication: RENAL TRANSPLANT
     Dosage: UNK
  4. ADRENAL HORMONE PREPARATIONS [Concomitant]
     Dosage: UNK
  5. STEROIDS NOS [Concomitant]
     Indication: IMMUNOSUPPRESSION
  6. MYCOPHENOLATE MOFETIL [Concomitant]
     Indication: IMMUNOSUPPRESSION
     Dosage: 1,00 MG
  7. PREDNISOLONE [Concomitant]
     Dosage: 15 MG

REACTIONS (12)
  - ACUTE RESPIRATORY DISTRESS SYNDROME [None]
  - DERMATITIS BULLOUS [None]
  - HERPES ZOSTER [None]
  - INFECTION [None]
  - KIDNEY TRANSPLANT REJECTION [None]
  - MECHANICAL VENTILATION [None]
  - ORAL CANDIDIASIS [None]
  - ORAL DISORDER [None]
  - PNEUMONIA HERPES VIRAL [None]
  - RENAL IMPAIRMENT [None]
  - RESPIRATORY FAILURE [None]
  - VASCULITIS [None]
